FAERS Safety Report 9217695 (Version 1)
Quarter: 2013Q2

REPORT INFORMATION
  Report Type: Spontaneous
  Country: GB (occurrence: GB)
  Receive Date: 20130408
  Receipt Date: 20130408
  Transmission Date: 20140414
  Serious: Yes (Other)
  Sender: FDA-Public Use
  Company Number: GB-ROCHE-1210540

PATIENT
  Age: 57 Year
  Sex: Male
  Weight: 70 kg

DRUGS (11)
  1. RIBAVIRIN [Suspect]
     Indication: HEPATITIS C
     Route: 065
  2. RIBAVIRIN [Suspect]
     Route: 065
     Dates: start: 20121127
  3. RIBAVIRIN [Suspect]
     Route: 065
     Dates: start: 20130121
  4. RIBAVIRIN [Suspect]
     Route: 065
  5. RIBAVIRIN [Suspect]
     Route: 065
     Dates: start: 20130121
  6. INCIVO [Suspect]
     Indication: HEPATITIS C
     Route: 048
     Dates: start: 20121127
  7. PEG-INTERFERON ALFA 2A [Concomitant]
     Indication: HEPATITIS C
     Route: 065
     Dates: start: 2008
  8. PEG-INTERFERON ALFA 2A [Concomitant]
     Route: 065
     Dates: start: 20121127
  9. METHADONE [Concomitant]
     Route: 042
  10. METHADONE [Concomitant]
     Route: 048
  11. OMEPRAZOLE [Concomitant]
     Route: 065

REACTIONS (16)
  - Anaemia [Unknown]
  - Decreased appetite [Unknown]
  - Depression [Unknown]
  - Dry skin [Unknown]
  - Influenza like illness [Unknown]
  - Feeling abnormal [Unknown]
  - Haemorrhoids [Unknown]
  - Amnesia [Unknown]
  - Mouth ulceration [Unknown]
  - Nausea [Unknown]
  - Pain [Unknown]
  - Rash [Unknown]
  - Dyspnoea [Unknown]
  - Fatigue [Unknown]
  - Treatment noncompliance [Unknown]
  - Vomiting [Unknown]
